FAERS Safety Report 12070496 (Version 6)
Quarter: 2016Q3

REPORT INFORMATION
  Report Type: Report from Study
  Country: ZA (occurrence: ZA)
  Receive Date: 20160211
  Receipt Date: 20160811
  Transmission Date: 20161109
  Serious: Yes (Death)
  Sender: FDA-Public Use
  Company Number: ZA-JNJFOC-20160208946

PATIENT
  Age: 35 Year
  Sex: Male
  Weight: 65 kg

DRUGS (20)
  1. LINEZOLID. [Suspect]
     Active Substance: LINEZOLID
     Indication: TUBERCULOSIS
     Route: 048
     Dates: start: 20151215, end: 20160111
  2. PZA [Concomitant]
     Active Substance: PYRAZINAMIDE
     Route: 065
     Dates: start: 20141214, end: 20151208
  3. OXYMETAZOLINE HYDROCHLORIDE. [Concomitant]
     Active Substance: OXYMETAZOLINE HYDROCHLORIDE
     Route: 065
     Dates: start: 20150104, end: 20160205
  4. TRUVADA [Concomitant]
     Active Substance: EMTRICITABINE\TENOFOVIR DISOPROXIL FUMARATE
     Route: 065
     Dates: start: 20151130, end: 20160205
  5. PYRIDOXINE HYDROCHLORIDE. [Concomitant]
     Active Substance: PYRIDOXINE HYDROCHLORIDE
     Route: 065
     Dates: start: 20141210, end: 20160205
  6. SLOW-K [Concomitant]
     Active Substance: POTASSIUM CHLORIDE
     Route: 065
     Dates: start: 20150205, end: 20160205
  7. MYDRIACYL [Concomitant]
     Active Substance: TROPICAMIDE
     Route: 065
     Dates: start: 20151215, end: 20151215
  8. LINEZOLID. [Suspect]
     Active Substance: LINEZOLID
     Indication: TUBERCULOSIS
     Route: 048
     Dates: start: 20160112, end: 20160203
  9. PRETOMANID [Suspect]
     Active Substance: PRETOMANID
     Indication: TUBERCULOSIS
     Route: 048
     Dates: start: 20151215, end: 20160203
  10. PHOLCODINE [Concomitant]
     Active Substance: PHOLCODINE
     Route: 065
     Dates: start: 20150205, end: 20160205
  11. MAXOLON [Concomitant]
     Active Substance: METOCLOPRAMIDE HYDROCHLORIDE
     Route: 065
     Dates: start: 20160201, end: 20160205
  12. AMINOSALICYLATE SODIUM [Concomitant]
     Active Substance: AMINOSALICYLATE SODIUM
     Route: 065
     Dates: start: 20141210, end: 20151208
  13. ETHAMBUTOL [Concomitant]
     Active Substance: ETHAMBUTOL HYDROCHLORIDE
     Route: 065
     Dates: start: 20141210, end: 20151208
  14. MOXIFLOXACIN. [Concomitant]
     Active Substance: MOXIFLOXACIN
     Route: 065
     Dates: start: 20141210, end: 20151208
  15. CLOFAZIMINE [Concomitant]
     Active Substance: CLOFAZIMINE
     Route: 065
     Dates: start: 20141210, end: 20151208
  16. SIRTURO [Suspect]
     Active Substance: BEDAQUILINE FUMARATE
     Indication: TUBERCULOSIS
     Route: 048
     Dates: start: 20151215, end: 20151227
  17. ALUVIA [Concomitant]
     Active Substance: LOPINAVIR\RITONAVIR
     Route: 065
     Dates: start: 20151130, end: 20160205
  18. ULTIMAG [Concomitant]
     Route: 065
     Dates: start: 20150205, end: 20160205
  19. SIRTURO [Suspect]
     Active Substance: BEDAQUILINE FUMARATE
     Indication: TUBERCULOSIS
     Route: 048
     Dates: start: 20151228, end: 20160203
  20. PARACETAMOL [Concomitant]
     Active Substance: ACETAMINOPHEN
     Route: 065
     Dates: start: 20160201, end: 20160205

REACTIONS (2)
  - Pancreatitis haemorrhagic [Fatal]
  - Multiple organ dysfunction syndrome [Not Recovered/Not Resolved]

NARRATIVE: CASE EVENT DATE: 20160204
